FAERS Safety Report 9067283 (Version 2)
Quarter: 2013Q2

REPORT INFORMATION
  Report Type: Report from Study
  Country: JP (occurrence: JP)
  Receive Date: 20130214
  Receipt Date: 20130523
  Transmission Date: 20140414
  Serious: Yes (Death, Hospitalization)
  Sender: FDA-Public Use
  Company Number: JP-ACTELION-A-CH2012-67815

PATIENT
  Age: 71 Year
  Sex: Female
  Weight: 29.6 kg

DRUGS (16)
  1. TRACLEER [Suspect]
     Indication: PULMONARY ARTERIAL HYPERTENSION
     Dosage: 62.5 MG, BID
     Route: 048
     Dates: start: 20091029, end: 20091202
  2. TRACLEER [Suspect]
     Dosage: 31.25 MG, BID
     Route: 048
     Dates: start: 20091203, end: 20100617
  3. TADALAFIL [Suspect]
     Indication: PULMONARY ARTERIAL HYPERTENSION
     Dosage: 20 MG, QD
     Route: 048
     Dates: start: 20091221, end: 20100108
  4. TADALAFIL [Suspect]
     Dosage: 30 MG, QD
     Route: 048
     Dates: start: 20100109, end: 20100127
  5. TADALAFIL [Suspect]
     Dosage: 40 MG, QD
     Route: 048
     Dates: start: 20100128, end: 20100617
  6. IMATINIB MESILATE [Suspect]
     Indication: PULMONARY ARTERIAL HYPERTENSION
     Dosage: 50 MG, QD
     Route: 048
     Dates: start: 20091120, end: 20100202
  7. IMATINIB MESILATE [Suspect]
     Dosage: 100 MG, QD
     Route: 048
     Dates: start: 20100203
  8. EPOPROSTENOL SODIUM [Concomitant]
  9. URSODEOXYCHOLIC ACID [Concomitant]
  10. BIFIDOBACTERIUM BIFIDUM [Concomitant]
  11. ZOPICLONE [Concomitant]
  12. DIPHENHYDRAMINE [Concomitant]
  13. FUROSEMIDE [Concomitant]
  14. SPIRONOLACTONE [Concomitant]
  15. LANSOPRAZOLE [Concomitant]
  16. OXYGEN [Concomitant]

REACTIONS (9)
  - Cholangitis suppurative [Fatal]
  - Bronchitis [Not Recovered/Not Resolved]
  - Liver function test abnormal [Not Recovered/Not Resolved]
  - Alanine aminotransferase increased [Not Recovered/Not Resolved]
  - Blood alkaline phosphatase increased [Not Recovered/Not Resolved]
  - Gamma-glutamyltransferase increased [Not Recovered/Not Resolved]
  - Constipation [Recovering/Resolving]
  - Urinary tract infection [Recovering/Resolving]
  - Dermatitis exfoliative [Unknown]
